FAERS Safety Report 18099293 (Version 1)
Quarter: 2020Q3

REPORT INFORMATION
  Report Type: Spontaneous
  Country: US (occurrence: US)
  Receive Date: 20200731
  Receipt Date: 20200731
  Transmission Date: 20201103
  Serious: Yes (Hospitalization)
  Sender: FDA-Public Use
  Company Number: US-009507513-2007USA010632

PATIENT
  Age: 18 Year
  Sex: Male

DRUGS (6)
  1. INCIVEK [Suspect]
     Active Substance: TELAPREVIR
     Dosage: 2250 MILLIGRAM DOSAGE FORM: TABLET
     Route: 048
     Dates: start: 20120528, end: 20120621
  2. REBETOL [Suspect]
     Active Substance: RIBAVIRIN
     Indication: HEPATITIS C
     Dosage: 1200 MILLIGRAM, DOSAGE FORM: TABLET
     Route: 048
     Dates: start: 20120408, end: 20120514
  3. PEGINTRON [Suspect]
     Active Substance: PEGINTERFERON ALFA-2B
     Indication: HEPATITIS C
     Dosage: DOSAGE FORM: INJECTION, 120
     Route: 058
     Dates: start: 20120408, end: 20120514
  4. INCIVEK [Suspect]
     Active Substance: TELAPREVIR
     Indication: HEPATITIS C
     Dosage: 2250 MILLIGRAM DOSAGE FORM: TABLET
     Route: 048
     Dates: start: 20120408, end: 20120514
  5. PEGINTRON [Suspect]
     Active Substance: PEGINTERFERON ALFA-2B
     Dosage: DOSAGE FORM: INJECTION, 120
     Route: 058
     Dates: start: 20120528, end: 20120618
  6. REBETOL [Suspect]
     Active Substance: RIBAVIRIN
     Dosage: 1200 MILLIGRAM, DOSAGE FORM: TABLET
     Route: 048
     Dates: start: 20120528, end: 20120621

REACTIONS (3)
  - Folliculitis [Recovered/Resolved]
  - Drug ineffective [Unknown]
  - Influenza like illness [Recovered/Resolved]

NARRATIVE: CASE EVENT DATE: 20120408
